FAERS Safety Report 15856635 (Version 1)
Quarter: 2019Q1

REPORT INFORMATION
  Report Type: Spontaneous
  Country: JP (occurrence: JP)
  Receive Date: 20190123
  Receipt Date: 20190123
  Transmission Date: 20190417
  Serious: Yes (Other)
  Sender: FDA-Public Use
  Company Number: JP-AMGEN-JPNSP2018160119

PATIENT
  Age: 65 Year
  Sex: Female

DRUGS (10)
  1. G-LASTA [Suspect]
     Active Substance: PEGFILGRASTIM
     Indication: COLONY STIMULATING FACTOR THERAPY
     Dosage: 3.6 MG, UNK
     Route: 058
     Dates: start: 20180815, end: 20180815
  2. EPIRUBICIN [Concomitant]
     Active Substance: EPIRUBICIN
     Indication: BREAST CANCER
     Dosage: 130 MG
     Route: 041
     Dates: start: 20180813, end: 20180813
  3. G-LASTA [Suspect]
     Active Substance: PEGFILGRASTIM
     Dosage: 3.6 MG, UNK
     Route: 058
     Dates: start: 20180919, end: 20180919
  4. CYCLOPHOSPHAMIDE. [Concomitant]
     Active Substance: CYCLOPHOSPHAMIDE
     Dosage: 800 MG
     Route: 041
     Dates: start: 20180917, end: 20180917
  5. EPIRUBICIN [Concomitant]
     Active Substance: EPIRUBICIN
     Dosage: 130 MG
     Route: 041
     Dates: start: 20180827, end: 20180827
  6. CYCLOPHOSPHAMIDE. [Concomitant]
     Active Substance: CYCLOPHOSPHAMIDE
     Dosage: 800 MG
     Route: 041
     Dates: start: 20180827, end: 20180827
  7. G-LASTA [Suspect]
     Active Substance: PEGFILGRASTIM
     Dosage: 3.6 MG, UNK
     Route: 058
     Dates: start: 20180829, end: 20180829
  8. CYCLOPHOSPHAMIDE. [Concomitant]
     Active Substance: CYCLOPHOSPHAMIDE
     Indication: BREAST CANCER
     Dosage: 800 MG
     Route: 041
     Dates: start: 20180813, end: 20180813
  9. EPIRUBICIN [Concomitant]
     Active Substance: EPIRUBICIN
     Dosage: 130 MG
     Route: 041
     Dates: start: 20180917, end: 20180917
  10. EMEND [Concomitant]
     Active Substance: APREPITANT
     Indication: PROPHYLAXIS
     Dosage: UNK
     Route: 048

REACTIONS (2)
  - Acute febrile neutrophilic dermatosis [Recovering/Resolving]
  - Chemotherapy [Unknown]
